FAERS Safety Report 6597149-4 (Version None)
Quarter: 2010Q1

REPORT INFORMATION
  Report Type: 
  Country: None (occurrence: None)
  Receive Date: 20100223
  Receipt Date: 20100212
  Transmission Date: 20100710
  Serious: Yes (Other)
  Sender: FDA-Public Use
  Company Number: US-JNJFOC-20100103805

PATIENT
  Sex: Male

DRUGS (17)
  1. EXTRA STRENGTH TYLENOL [Suspect]
     Indication: BACK DISORDER
     Dosage: 500 MG EVERY 4-5 HOURS AS NEEDED, ORAL
     Route: 048
     Dates: start: 20090807, end: 20100111
  2. EXTRA STRENGTH TYLENOL [Suspect]
     Indication: ARTHROPATHY
     Dosage: 500 MG EVERY 4-5 HOURS AS NEEDED, ORAL
     Route: 048
     Dates: start: 20090807, end: 20100111
  3. EXTRA STRENGTH TYLENOL [Suspect]
     Dosage: 500 MG EVERY 4-5 HOURS AS NEEDED, ORAL
     Route: 048
     Dates: start: 20090807, end: 20100111
  4. EXTRA STRENGTH TYLENOL [Suspect]
     Indication: HEADACHE
     Dosage: 500 MG EVERY 4-5 HOURS AS NEEDED, ORAL
     Route: 048
     Dates: start: 20090807, end: 20100111
  5. TYLENOL-500 [Suspect]
     Route: 048
  6. TYLENOL-500 [Suspect]
     Indication: HEADACHE
     Route: 048
  7. GLIPIZIDE [Concomitant]
  8. ASPIRIN [Concomitant]
  9. NIACIN [Concomitant]
  10. NIFEDIPINE [Concomitant]
     Indication: BLOOD PRESSURE ABNORMAL
  11. PLAVIX [Concomitant]
     Indication: CARDIOVASCULAR EVENT PROPHYLAXIS
  12. LISINOPRIL [Concomitant]
     Indication: BLOOD PRESSURE ABNORMAL
  13. METOPROLOL TARTRATE [Concomitant]
     Indication: CARDIOVASCULAR EVENT PROPHYLAXIS
  14. INSULIN [Concomitant]
     Dosage: 70/30, ONCE IN AM, ONCE IN PM
  15. OPANA [Concomitant]
     Indication: PAIN
  16. OPANA [Concomitant]
  17. OMEPRAZOLE [Concomitant]
     Indication: ABDOMINAL RIGIDITY

REACTIONS (7)
  - ABDOMINAL PAIN [None]
  - CHEST DISCOMFORT [None]
  - DIARRHOEA [None]
  - ERUCTATION [None]
  - NAUSEA [None]
  - PRODUCT QUALITY ISSUE [None]
  - VOMITING [None]
